FAERS Safety Report 16978716 (Version 1)
Quarter: 2019Q4

REPORT INFORMATION
  Report Type: Spontaneous
  Country: US (occurrence: US)
  Receive Date: 20191031
  Receipt Date: 20191031
  Transmission Date: 20200122
  Serious: Yes (Other)
  Sender: FDA-Public Use
  Company Number: US-SUNOVION-2019SUN004501

PATIENT
  Age: 35 Year
  Sex: Female

DRUGS (1)
  1. LATUDA [Suspect]
     Active Substance: LURASIDONE HYDROCHLORIDE
     Indication: AFFECTIVE DISORDER
     Dosage: 40 MG, QD
     Route: 048
     Dates: end: 20191017

REACTIONS (2)
  - Dystonia [Not Recovered/Not Resolved]
  - Off label use [Unknown]
